FAERS Safety Report 10058281 (Version 1)
Quarter: 2014Q2

REPORT INFORMATION
  Report Type: Spontaneous
  Country: FR (occurrence: FR)
  Receive Date: 20140404
  Receipt Date: 20140404
  Transmission Date: 20141212
  Serious: Yes (Life-Threatening, Other)
  Sender: FDA-Public Use
  Company Number: FR-JNJFOC-20140318518

PATIENT
  Sex: Male

DRUGS (6)
  1. XARELTO [Suspect]
     Indication: CEREBROVASCULAR ACCIDENT PROPHYLAXIS
     Route: 048
     Dates: start: 201304, end: 20140314
  2. XARELTO [Suspect]
     Indication: ATRIAL FIBRILLATION
     Route: 048
     Dates: start: 201304, end: 20140314
  3. LOXEN [Concomitant]
     Route: 065
  4. LASILIX [Concomitant]
     Route: 065
  5. KERLONE [Concomitant]
     Route: 065
  6. ALLOPURINOL [Concomitant]
     Route: 065

REACTIONS (1)
  - Drug-induced liver injury [Unknown]
